FAERS Safety Report 7535366-7 (Version None)
Quarter: 2011Q2

REPORT INFORMATION
  Report Type: 
  Country: None (occurrence: None)
  Receive Date: 20110609
  Receipt Date: 20080226
  Transmission Date: 20111010
  Serious: Yes (Death, Other)
  Sender: FDA-Public Use
  Company Number: PHHY2008IN02126

PATIENT
  Sex: Female

DRUGS (2)
  1. GLEEVEC [Suspect]
     Indication: CHRONIC MYELOID LEUKAEMIA
     Dosage: 600 MG, QD
     Route: 048
     Dates: start: 20070704
  2. GLEEVEC [Suspect]
     Dosage: 800 MG, QD
     Route: 048

REACTIONS (3)
  - BLOOD DISORDER [None]
  - DRUG INEFFECTIVE [None]
  - DEATH [None]
